FAERS Safety Report 24977264 (Version 1)
Quarter: 2025Q1

REPORT INFORMATION
  Report Type: Spontaneous
  Country: DK (occurrence: DK)
  Receive Date: 20250217
  Receipt Date: 20250217
  Transmission Date: 20250409
  Serious: Yes (Death, Hospitalization)
  Sender: CHEPLAPHARM
  Company Number: None

PATIENT
  Age: 88 Year
  Sex: Male
  Weight: 53 kg

DRUGS (1)
  1. OLANZAPINE [Suspect]
     Active Substance: OLANZAPINE
     Indication: Delirium
     Route: 030
     Dates: start: 20250129, end: 20250129

REACTIONS (11)
  - Neuroleptic malignant syndrome [Fatal]
  - Pneumonia [Unknown]
  - Influenza [Unknown]
  - Musculoskeletal stiffness [Not Recovered/Not Resolved]
  - Pyrexia [Recovering/Resolving]
  - Hyperreflexia [Not Recovered/Not Resolved]
  - Tachycardia [Recovering/Resolving]
  - Muscle rigidity [Recovering/Resolving]
  - Cognitive disorder [Unknown]
  - Asthenia [Unknown]
  - Off label use [Recovered/Resolved]

NARRATIVE: CASE EVENT DATE: 20250101
